APPROVED DRUG PRODUCT: PREGABALIN
Active Ingredient: PREGABALIN
Strength: 100MG
Dosage Form/Route: CAPSULE;ORAL
Application: A210585 | Product #003 | TE Code: AB
Applicant: SOMERSET THERAPEUTICS LLC
Approved: Dec 26, 2019 | RLD: No | RS: No | Type: RX